FAERS Safety Report 7671137-9 (Version None)
Quarter: 2011Q3

REPORT INFORMATION
  Report Type: 
  Country: None (occurrence: None)
  Receive Date: 20110808
  Receipt Date: 20110808
  Transmission Date: 20111222
  Serious: Yes (Hospitalization)
  Sender: FDA-Public Use
  Company Number: None

PATIENT
  Sex: Male
  Weight: 87 kg

DRUGS (8)
  1. LUMIGAN [Concomitant]
  2. PSYLLIUM PACKET [Concomitant]
  3. COMPAZINE [Concomitant]
  4. SUNITINIB MALATE [Suspect]
     Indication: RENAL CANCER METASTATIC
     Dosage: 50MG QD X 4 WKS, Q 6WKS
     Dates: start: 20110610, end: 20110707
  5. BRIMONIDINE EYE DROPS [Concomitant]
  6. ZOFRAN [Concomitant]
  7. METIPRANOLOL EYE DROPTS [Concomitant]
  8. VIAGRA [Concomitant]

REACTIONS (4)
  - EUBACTERIUM INFECTION [None]
  - PYREXIA [None]
  - BACTERIAL INFECTION [None]
  - CHILLS [None]
